FAERS Safety Report 15898300 (Version 4)
Quarter: 2019Q1

REPORT INFORMATION
  Report Type: Spontaneous
  Country: JP (occurrence: JP)
  Receive Date: 20190201
  Receipt Date: 20190226
  Transmission Date: 20190417
  Serious: Yes (Death)
  Sender: FDA-Public Use
  Company Number: JP-TEVA-2019-JP-1007014

PATIENT
  Age: 67 Year
  Sex: Female

DRUGS (8)
  1. DEXAMETHASONE. [Suspect]
     Active Substance: DEXAMETHASONE
     Indication: PARANEOPLASTIC PEMPHIGUS
     Route: 065
     Dates: start: 201408
  2. ALPROSTADIL ALFADEX [Concomitant]
     Active Substance: ALPROSTADIL ALFADEX
     Indication: PARANEOPLASTIC PEMPHIGUS
     Dates: start: 201411
  3. BENDAMUSTINE HYDROCHLORIDE. [Suspect]
     Active Substance: BENDAMUSTINE HYDROCHLORIDE
     Indication: B-CELL LYMPHOMA
     Dosage: 60 MG/M2 DAILY;
     Route: 042
     Dates: start: 2015
  4. SODIUM AZULENE SULFONATE [Suspect]
     Active Substance: SODIUM GUALENATE
     Indication: PARANEOPLASTIC PEMPHIGUS
     Route: 065
     Dates: start: 201408
  5. PREDNISOLONE. [Suspect]
     Active Substance: PREDNISOLONE
     Indication: PARANEOPLASTIC PEMPHIGUS
     Dosage: 10 MILLIGRAM DAILY;
     Route: 065
     Dates: start: 201410
  6. METHYLPREDNISOLONE. [Suspect]
     Active Substance: METHYLPREDNISOLONE
     Indication: PARANEOPLASTIC PEMPHIGUS
     Dosage: 1000 MILLIGRAM DAILY; PULSE THERAPY
     Route: 065
  7. RITUXIMAB. [Suspect]
     Active Substance: RITUXIMAB
     Indication: PARANEOPLASTIC PEMPHIGUS
     Dosage: 375 MG/M2 DAILY;
     Route: 041
     Dates: start: 2014
  8. IMMUNE GLOBULIN NOS [Suspect]
     Active Substance: IMMUNE GLOBULIN NOS
     Indication: PARANEOPLASTIC PEMPHIGUS
     Dosage: 0.4G/KG/DAY
     Route: 042

REACTIONS (4)
  - Drug ineffective [Unknown]
  - Impaired healing [Unknown]
  - Pneumonia aspiration [Fatal]
  - Prescribed underdose [Unknown]

NARRATIVE: CASE EVENT DATE: 2015
